FAERS Safety Report 10058707 (Version 1)
Quarter: 2014Q2

REPORT INFORMATION
  Report Type: Spontaneous
  Country: PT (occurrence: None)
  Receive Date: 20140402
  Receipt Date: 20140402
  Transmission Date: 20141212
  Serious: Yes (Life-Threatening)
  Sender: FDA-Public Use
  Company Number: FK201400983

PATIENT
  Age: 64 Year
  Sex: Female
  Weight: 58 kg

DRUGS (1)
  1. PACLITAXEL [Suspect]
     Indication: BREAST CANCER
     Route: 042

REACTIONS (8)
  - Dyspnoea [None]
  - Back pain [None]
  - Malaise [None]
  - Oxygen saturation decreased [None]
  - Erythema [None]
  - Feeling hot [None]
  - Flushing [None]
  - Infusion related reaction [None]
